FAERS Safety Report 9341038 (Version 1)
Quarter: 2013Q2

REPORT INFORMATION
  Report Type: Spontaneous
  Country: GB (occurrence: GB)
  Receive Date: 20130610
  Receipt Date: 20130610
  Transmission Date: 20140414
  Serious: Yes (Other)
  Sender: FDA-Public Use
  Company Number: GB-ASTRAZENECA-2013SE40047

PATIENT
  Sex: Female

DRUGS (7)
  1. BRILIQUE [Suspect]
     Route: 048
  2. OLANZAPINE [Concomitant]
  3. NICORANDIL [Concomitant]
  4. LOSARTAN [Concomitant]
  5. SIMVASTATIN [Concomitant]
  6. OMEPRAZOLE [Concomitant]
  7. DOXAZOSIN [Concomitant]

REACTIONS (2)
  - Motor neurone disease [Unknown]
  - Dysphagia [Unknown]
